FAERS Safety Report 14097355 (Version 1)
Quarter: 2017Q4

REPORT INFORMATION
  Report Type: Spontaneous
  Country: US (occurrence: US)
  Receive Date: 20171016
  Receipt Date: 20171016
  Transmission Date: 20180321
  Serious: Yes (Other)
  Sender: FDA-Public Use
  Company Number: None

PATIENT
  Age: 69 Year
  Sex: Male
  Weight: 85.05 kg

DRUGS (1)
  1. MEDERMA QUICK DRY OIL [Suspect]
     Active Substance: HERBALS
     Indication: SUTURE REMOVAL
     Dates: start: 20171014, end: 20171016

REACTIONS (4)
  - Accidental exposure to product [None]
  - Product label confusion [None]
  - Product physical consistency issue [None]
  - Eye irritation [None]

NARRATIVE: CASE EVENT DATE: 20171016
